FAERS Safety Report 9618918 (Version 2)
Quarter: 2013Q4

REPORT INFORMATION
  Report Type: Spontaneous
  Country: FR (occurrence: FR)
  Receive Date: 20131014
  Receipt Date: 20131022
  Transmission Date: 20140711
  Serious: Yes (Other)
  Sender: FDA-Public Use
  Company Number: FR-UCBSA-099859

PATIENT
  Age: 60 Year
  Sex: Male

DRUGS (12)
  1. KEPPRA [Suspect]
     Indication: BRAIN ABSCESS
     Dosage: STRENGTH: 500 MG
     Route: 048
     Dates: start: 201306, end: 201307
  2. XATRAL LP [Suspect]
     Dosage: EXTENDED RELEASE TABLET
     Route: 048
     Dates: start: 201306, end: 201307
  3. CEFOTAXIME PANPHARMA [Suspect]
     Indication: BRAIN ABSCESS
     Dosage: DAILY DOSE: 12 G
     Route: 042
     Dates: start: 20130617, end: 20130727
  4. TAHOR [Concomitant]
     Indication: HYPERCHOLESTEROLAEMIA
     Dosage: DAILY DOSE: 40 MG
  5. KERLONE [Concomitant]
     Indication: HYPERTENSION
  6. FLAGYL [Concomitant]
     Dates: start: 20130617, end: 20130816
  7. EUPRESSYL [Concomitant]
  8. LOXEN [Concomitant]
  9. LOVENOX [Concomitant]
  10. DOLIPRANE [Concomitant]
  11. TOPALGIC [Concomitant]
  12. VITABACT [Concomitant]

REACTIONS (1)
  - Neutropenia [Recovered/Resolved]
